FAERS Safety Report 25071174 (Version 4)
Quarter: 2025Q3

REPORT INFORMATION
  Report Type: Report from Study
  Country: US (occurrence: US)
  Receive Date: 20250312
  Receipt Date: 20250702
  Transmission Date: 20251020
  Serious: Yes (Hospitalization)
  Sender: MERCK SHARP & DOHME LLC
  Company Number: US-009507513-2255468

PATIENT
  Age: 73 Year
  Sex: Male
  Weight: 74.843 kg

DRUGS (35)
  1. WINREVAIR [Suspect]
     Active Substance: SOTATERCEPT-CSRK
     Indication: Pulmonary arterial hypertension
     Route: 058
  2. WINREVAIR [Suspect]
     Active Substance: SOTATERCEPT-CSRK
  3. WINREVAIR [Suspect]
     Active Substance: SOTATERCEPT-CSRK
  4. WINREVAIR [Suspect]
     Active Substance: SOTATERCEPT-CSRK
  5. WINREVAIR [Suspect]
     Active Substance: SOTATERCEPT-CSRK
  6. WINREVAIR [Suspect]
     Active Substance: SOTATERCEPT-CSRK
  7. WINREVAIR [Suspect]
     Active Substance: SOTATERCEPT-CSRK
  8. WINREVAIR [Suspect]
     Active Substance: SOTATERCEPT-CSRK
  9. TYVASO DPI [Suspect]
     Active Substance: TREPROSTINIL
     Indication: Pulmonary arterial hypertension
     Route: 055
     Dates: start: 20240325
  10. TYVASO DPI [Suspect]
     Active Substance: TREPROSTINIL
     Indication: Pulmonary arterial hypertension
     Dosage: DRY POWDER, 48 ?G
     Route: 055
  11. TYVASO DPI [Suspect]
     Active Substance: TREPROSTINIL
     Indication: Pulmonary arterial hypertension
     Dosage: DRY POWDER, 112 ?G (48 ?G + 64 ?G)
     Route: 055
  12. NEOMYCIN-BACITRACIN-POLYMYXIN [Concomitant]
  13. MOMETASONE FUROATE [Concomitant]
     Active Substance: MOMETASONE FUROATE
  14. EPLERENONE [Concomitant]
     Active Substance: EPLERENONE
  15. MUPIROCIN [Concomitant]
     Active Substance: MUPIROCIN
  16. TADALAFIL [Concomitant]
     Active Substance: TADALAFIL
  17. FISH OIL [Concomitant]
     Active Substance: FISH OIL
  18. BIKTARVY [Concomitant]
     Active Substance: BICTEGRAVIR SODIUM\EMTRICITABINE\TENOFOVIR ALAFENAMIDE FUMARATE
  19. ELIQUIS [Concomitant]
     Active Substance: APIXABAN
  20. DALVANCE [Concomitant]
     Active Substance: DALBAVANCIN HYDROCHLORIDE
  21. DAPTOMYCIN [Concomitant]
     Active Substance: DAPTOMYCIN
  22. OXYGEN [Concomitant]
     Active Substance: OXYGEN
  23. LIPITOR [Concomitant]
     Active Substance: ATORVASTATIN CALCIUM
  24. HYDROCORTISONE [Concomitant]
     Active Substance: HYDROCORTISONE
  25. PREDNISONE [Concomitant]
     Active Substance: PREDNISONE
  26. COLCHICINE [Concomitant]
     Active Substance: COLCHICINE
  27. NYSTATIN [Concomitant]
     Active Substance: NYSTATIN
  28. TYLENOL [Concomitant]
     Active Substance: ACETAMINOPHEN
  29. GABAPENTIN [Concomitant]
     Active Substance: GABAPENTIN
  30. TORSEMIDE [Concomitant]
     Active Substance: TORSEMIDE
  31. MIDODRINE HYDROCHLORIDE [Concomitant]
     Active Substance: MIDODRINE HYDROCHLORIDE
  32. AMBRISENTAN [Concomitant]
     Active Substance: AMBRISENTAN
  33. FERROUS SULFATE [Concomitant]
     Active Substance: FERROUS SULFATE
  34. TRIAMCINOLONE ACETONIDE [Concomitant]
     Active Substance: TRIAMCINOLONE ACETONIDE
  35. ASPIRIN [Concomitant]
     Active Substance: ASPIRIN

REACTIONS (4)
  - Catheterisation cardiac [Not Recovered/Not Resolved]
  - Granuloma annulare [Not Recovered/Not Resolved]
  - Liquid product physical issue [Unknown]
  - Product physical issue [Unknown]

NARRATIVE: CASE EVENT DATE: 20241223
